FAERS Safety Report 25979590 (Version 1)
Quarter: 2025Q4

REPORT INFORMATION
  Report Type: Spontaneous
  Country: EU (occurrence: EU)
  Receive Date: 20251030
  Receipt Date: 20251030
  Transmission Date: 20260117
  Serious: Yes (Life-Threatening, Hospitalization, Other)
  Sender: SANDOZ
  Company Number: EU-SANDOZ-SDZ2025DE080234

PATIENT
  Age: 11 Year
  Sex: Male
  Weight: 35 kg

DRUGS (3)
  1. LEVETIRACETAM [Suspect]
     Active Substance: LEVETIRACETAM
     Indication: Cyanosis
     Dosage: 10 MG/KG OVER 30 MINUTES, ALL DOSES ADMINIS TERED WERE DILUTED IN SODIUM CHLORIDE 0.9%
     Route: 042
  2. LEVETIRACETAM [Suspect]
     Active Substance: LEVETIRACETAM
     Dosage: 20 MG/KG/DAY IN 2 DIVIDED DOSES, ALL DOSES ADMINIS TERED WERE DILUTED IN SODIUM CHLORIDE 0.9%
     Route: 042
  3. LEVETIRACETAM [Suspect]
     Active Substance: LEVETIRACETAM
     Indication: Muscular dystrophy
     Dosage: 30 MG/KG WAS ADMINISTERED  OVER 30 MINUTES, ALL DOSES ADMINIS TERED WERE DILUTED IN SODIUM CHLORIDE
     Route: 042

REACTIONS (1)
  - Metabolic acidosis [Recovered/Resolved]
